FAERS Safety Report 5150714-3 (Version None)
Quarter: 2006Q4

REPORT INFORMATION
  Report Type: 
  Country: None (occurrence: None)
  Receive Date: 20061114
  Receipt Date: 20061106
  Transmission Date: 20070319
  Serious: Yes (Other)
  Sender: FDA-Public Use
  Company Number: US-SANOFI-SYNTHELABO-A03200606693

PATIENT
  Sex: Female
  Weight: 67.6 kg

DRUGS (3)
  1. PLAQUENIL [Suspect]
     Indication: DRUG USE FOR UNKNOWN INDICATION
     Dosage: 200 MG 5 DAYS A WEEK
     Route: 048
     Dates: start: 20060101
  2. PLAQUENIL [Suspect]
     Route: 048
     Dates: start: 20050101, end: 20060101
  3. PLAQUENIL [Suspect]
     Route: 048
     Dates: start: 20020101, end: 20050101

REACTIONS (1)
  - MACULAR DEGENERATION [None]
